FAERS Safety Report 8714880 (Version 3)
Quarter: 2012Q4

REPORT INFORMATION
  Report Type: Report from Study
  Country: DE (occurrence: DE)
  Receive Date: 20120809
  Receipt Date: 20121109
  Transmission Date: 20130627
  Serious: Yes (Hospitalization)
  Sender: FDA-Public Use
  Company Number: DE-AMGEN-DEUCT2011057828

PATIENT
  Age: 54 Year
  Sex: Female

DRUGS (11)
  1. PANITUMUMAB [Suspect]
     Indication: GASTROOESOPHAGEAL CANCER
     Dosage: 9 mg/kg, q2wk
     Route: 042
     Dates: start: 20110516, end: 20111011
  2. EPIRUBICIN [Concomitant]
     Dosage: 98.5 mg, UNK
     Route: 042
     Dates: start: 20110517
  3. CISPLATIN [Concomitant]
     Dosage: 118.2 mg, UNK
     Route: 042
     Dates: start: 20110517
  4. XELODA [Concomitant]
     Dosage: 650 mg/m2, UNK
     Route: 048
     Dates: start: 20110517
  5. CLEXANE [Concomitant]
     Dosage: 1.6 UNK, UNK
     Dates: start: 20110516
  6. PANTOZOL [Concomitant]
  7. FENISTIL [Concomitant]
     Dosage: UNK
     Dates: start: 20110516
  8. LANTIC [Concomitant]
     Dosage: UNK
     Dates: start: 20110516
  9. FORTECORTIN [Concomitant]
     Dosage: UNK
     Dates: start: 20110516
  10. KEVATRIL [Concomitant]
     Dosage: UNK
     Dates: start: 20110516
  11. LASIX [Concomitant]
     Dosage: UNK
     Dates: start: 20110516

REACTIONS (1)
  - Venous occlusion [Recovered/Resolved with Sequelae]
